FAERS Safety Report 6968567-7 (Version None)
Quarter: 2010Q3

REPORT INFORMATION
  Report Type: 
  Country: None (occurrence: None)
  Receive Date: 20100903
  Receipt Date: 20100903
  Transmission Date: 20110219
  Serious: Yes (Other)
  Sender: FDA-Public Use
  Company Number: None

PATIENT
  Age: 67 Year
  Sex: Female
  Weight: 68.0396 kg

DRUGS (2)
  1. ALENDRONATE SODIUM [Suspect]
     Indication: OSTEOPOROSIS
     Dosage: 1 TAB WEEKLY 047
     Route: 048
     Dates: start: 20090915
  2. AMOXICILLIN [Suspect]
     Indication: ENDODONTIC PROCEDURE
     Dosage: 1 CAPSULE 3 TIMES A DAY 047
     Route: 048
     Dates: start: 20100604

REACTIONS (2)
  - DRUG HYPERSENSITIVITY [None]
  - PAIN IN JAW [None]
